FAERS Safety Report 7033463-6 (Version None)
Quarter: 2010Q4

REPORT INFORMATION
  Report Type: 
  Country: None (occurrence: None)
  Receive Date: 20101007
  Receipt Date: 20100813
  Transmission Date: 20110411
  Serious: Yes (Hospitalization, Other)
  Sender: FDA-Public Use
  Company Number: PHHO2010AT11687

PATIENT
  Sex: Female
  Weight: 62 kg

DRUGS (5)
  1. ZOLEDRONATE T29581+ [Suspect]
     Indication: BREAST CANCER
     Dosage: 4 MG, EVERY 6 MONTHS
     Route: 042
     Dates: start: 20040419, end: 20070420
  2. NOLVADEX [Suspect]
     Indication: BREAST CANCER
     Dosage: UNK
     Dates: start: 20040419, end: 20070420
  3. ZOLADEX [Concomitant]
  4. CALCIUM [Concomitant]
  5. VITAMIN D [Concomitant]

REACTIONS (8)
  - CYST [None]
  - EXCORIATION [None]
  - HAEMORRHAGE [None]
  - HYSTERECTOMY [None]
  - OOPHORECTOMY [None]
  - OVARIAN CYST [None]
  - SALPINGITIS [None]
  - UTERINE CERVICAL SQUAMOUS METAPLASIA [None]
